FAERS Safety Report 23281627 (Version 2)
Quarter: 2023Q4

REPORT INFORMATION
  Report Type: Spontaneous
  Country: US (occurrence: US)
  Receive Date: 20231211
  Receipt Date: 20231212
  Transmission Date: 20240109
  Serious: No
  Sender: FDA-Public Use
  Company Number: US-002147023-NVSC2023US262492

PATIENT

DRUGS (1)
  1. KESIMPTA [Suspect]
     Active Substance: OFATUMUMAB
     Indication: Product used for unknown indication
     Dosage: UNK
     Route: 065

REACTIONS (8)
  - Abdominal discomfort [Unknown]
  - Pain [Unknown]
  - Illness [Unknown]
  - Pyrexia [Unknown]
  - Rash [Unknown]
  - Herpes zoster [Unknown]
  - Fatigue [Unknown]
  - Frustration tolerance decreased [Unknown]
